FAERS Safety Report 20628011 (Version 2)
Quarter: 2022Q1

REPORT INFORMATION
  Report Type: Spontaneous
  Country: FR (occurrence: FR)
  Receive Date: 20220323
  Receipt Date: 20220325
  Transmission Date: 20220424
  Serious: Yes (Life-Threatening, Hospitalization)
  Sender: FDA-Public Use
  Company Number: None

PATIENT
  Age: 49 Year
  Sex: Female

DRUGS (8)
  1. LOVENOX [Interacting]
     Active Substance: ENOXAPARIN SODIUM
     Indication: Pelvic venous thrombosis
     Dosage: 0.4 ML, QD
     Route: 058
     Dates: start: 20220209, end: 20220214
  2. LOVENOX [Interacting]
     Active Substance: ENOXAPARIN SODIUM
     Indication: Thrombosis prophylaxis
     Dosage: 0.8 ML, QD
     Route: 058
     Dates: start: 20220214, end: 20220221
  3. INDOMETHACIN [Interacting]
     Active Substance: INDOMETHACIN
     Indication: Ankylosing spondylitis
     Dosage: 75 MG
     Route: 048
  4. ENOXAPARIN SODIUM [Interacting]
     Active Substance: ENOXAPARIN SODIUM
     Indication: Pelvic venous thrombosis
     Dosage: 0.4 ML, QD
     Route: 058
     Dates: start: 20220209, end: 20220214
  5. ENOXAPARIN SODIUM [Interacting]
     Active Substance: ENOXAPARIN SODIUM
     Indication: Thrombosis prophylaxis
     Dosage: 0.8 ML, QD
     Route: 058
     Dates: start: 20220214, end: 20220221
  6. INDOMETHACIN [Interacting]
     Active Substance: INDOMETHACIN
     Indication: Ankylosing spondylitis
     Dosage: 75 MG
     Route: 048
  7. PROZAC [Concomitant]
     Active Substance: FLUOXETINE HYDROCHLORIDE
     Indication: Depression
     Dosage: 20 MG
     Route: 048
  8. PANTOPRAZOLE [Concomitant]
     Active Substance: PANTOPRAZOLE
     Indication: Prophylaxis against gastrointestinal ulcer
     Dosage: UNK

REACTIONS (1)
  - Shock haemorrhagic [Recovering/Resolving]

NARRATIVE: CASE EVENT DATE: 20220221
